FAERS Safety Report 4608642-5 (Version None)
Quarter: 2005Q1

REPORT INFORMATION
  Report Type: 
  Country: None (occurrence: None)
  Receive Date: 20050315
  Receipt Date: 20041012
  Transmission Date: 20050727
  Serious: Yes (Hospitalization, Other)
  Sender: FDA-Public Use
  Company Number: DEWYE105712OCT04

PATIENT
  Sex: Female

DRUGS (6)
  1. ENBREL [Suspect]
     Indication: POLYARTHRITIS
     Dosage: UNKNOWN
     Route: 058
     Dates: start: 20030314, end: 20040901
  2. FOSAMAX [Concomitant]
     Dates: start: 19990501
  3. CALCIUM CARBONATE [Concomitant]
     Route: 048
     Dates: start: 19990501
  4. COLECALCIFEROL [Concomitant]
     Route: 048
     Dates: start: 19990501
  5. PREDNISONE [Concomitant]
     Dates: start: 19940601
  6. VIOXX [Concomitant]
     Route: 048
     Dates: start: 20000201

REACTIONS (1)
  - GUILLAIN-BARRE SYNDROME [None]
